FAERS Safety Report 9553309 (Version 1)
Quarter: 2013Q3

REPORT INFORMATION
  Report Type: Spontaneous
  Country: US (occurrence: None)
  Receive Date: 20130805
  Receipt Date: 20130805
  Transmission Date: 20140515
  Serious: Yes (Hospitalization)
  Sender: FDA-Public Use
  Company Number: CERZ-1002935

PATIENT
  Age: 75 Year
  Sex: Male

DRUGS (1)
  1. CEREZYME [Suspect]
     Indication: GAUCHER^S DISEASE
     Route: 042
     Dates: start: 200512

REACTIONS (3)
  - Pneumonia [None]
  - Splenomegaly [None]
  - Aggression [None]
